FAERS Safety Report 23606053 (Version 1)
Quarter: 2024Q1

REPORT INFORMATION
  Report Type: Other
  Country: US (occurrence: US)
  Receive Date: 20240307
  Receipt Date: 20240307
  Transmission Date: 20240410
  Serious: Yes (Hospitalization, Other)
  Sender: FDA-Public Use
  Company Number: US-WES Pharma Inc-2154143

PATIENT
  Age: 6 Decade
  Sex: Female

DRUGS (8)
  1. OXYCODONE HYDROCHLORIDE [Suspect]
     Active Substance: OXYCODONE HYDROCHLORIDE
     Route: 065
  2. METHADONE [Suspect]
     Active Substance: METHADONE HYDROCHLORIDE
     Route: 065
  3. DULOXETINE [Concomitant]
     Active Substance: DULOXETINE
     Route: 065
  4. GABAPENTIN [Concomitant]
     Active Substance: GABAPENTIN
     Route: 065
  5. FENTANYL [Suspect]
     Active Substance: FENTANYL\FENTANYL CITRATE
     Route: 050
  6. MORPHINE [Suspect]
     Active Substance: MORPHINE
     Route: 065
  7. MORPHINE SULFATE [Suspect]
     Active Substance: MORPHINE SULFATE
     Route: 065
  8. TRAMADOL [Suspect]
     Active Substance: TRAMADOL\TRAMADOL HYDROCHLORIDE
     Route: 065

REACTIONS (1)
  - Neurotoxicity [Recovered/Resolved]
